FAERS Safety Report 17203453 (Version 1)
Quarter: 2019Q4

REPORT INFORMATION
  Report Type: Spontaneous
  Country: CA (occurrence: CA)
  Receive Date: 20191226
  Receipt Date: 20191226
  Transmission Date: 20200122
  Serious: Yes (Disabling)
  Sender: FDA-Public Use
  Company Number: CA-TEVA-2019-CA-1156849

PATIENT
  Age: 74 Year
  Sex: Female
  Weight: 72 kg

DRUGS (10)
  1. ASA [Concomitant]
     Active Substance: ASPIRIN
  2. CYMBALTA [Concomitant]
     Active Substance: DULOXETINE HYDROCHLORIDE
  3. EZETIMIBE. [Concomitant]
     Active Substance: EZETIMIBE
  4. CICLESONIDE [Concomitant]
     Active Substance: CICLESONIDE
  5. PREGABALIN. [Suspect]
     Active Substance: PREGABALIN
     Indication: NEURALGIA
     Dosage: 150 MILLIGRAM DAILY;
     Route: 048
  6. OMNARIS [Concomitant]
     Active Substance: CICLESONIDE
  7. PREVACID [Concomitant]
     Active Substance: LANSOPRAZOLE
  8. ROSUVASTATIN CALCIUM. [Concomitant]
     Active Substance: ROSUVASTATIN CALCIUM
  9. SENOKOT [Concomitant]
     Active Substance: SENNOSIDES
  10. SYNTHROID [Concomitant]
     Active Substance: LEVOTHYROXINE SODIUM

REACTIONS (5)
  - Condition aggravated [Unknown]
  - Drug ineffective [Unknown]
  - Disability [Unknown]
  - Product substitution issue [Unknown]
  - Neuralgia [Unknown]
